FAERS Safety Report 10099546 (Version 7)
Quarter: 2016Q2

REPORT INFORMATION
  Report Type: Report from Study
  Country: CA (occurrence: CA)
  Receive Date: 20140423
  Receipt Date: 20160412
  Transmission Date: 20160815
  Serious: Yes (Hospitalization, Other)
  Sender: FDA-Public Use
  Company Number: CA-JNJFOC-20140414293

PATIENT
  Age: 44 Year
  Sex: Male
  Weight: 66.9 kg

DRUGS (15)
  1. MAGNESIUM [Concomitant]
     Active Substance: MAGNESIUM
     Route: 065
  2. TEMAZEPAM. [Concomitant]
     Active Substance: TEMAZEPAM
     Route: 065
  3. DIMETHYLTRYPTAMINE. [Concomitant]
     Active Substance: DIMETHYLTRYPTAMINE
     Route: 065
  4. WARFARIN [Concomitant]
     Active Substance: WARFARIN
     Route: 065
  5. REMICADE [Suspect]
     Active Substance: INFLIXIMAB
     Indication: CROHN^S DISEASE
     Route: 042
     Dates: start: 20160218
  6. MAGNESIUM GLUCONATE [Concomitant]
     Active Substance: MAGNESIUM GLUCONATE
     Route: 065
  7. REMICADE [Suspect]
     Active Substance: INFLIXIMAB
     Indication: CROHN^S DISEASE
     Route: 042
     Dates: start: 20130220
  8. IRON [Concomitant]
     Active Substance: IRON
     Route: 065
  9. MORPHINE [Concomitant]
     Active Substance: MORPHINE
     Route: 048
  10. VENLAFAXINE [Concomitant]
     Active Substance: VENLAFAXINE HYDROCHLORIDE
     Route: 065
  11. ASACOL [Concomitant]
     Active Substance: MESALAMINE
     Route: 065
  12. IMURAN [Concomitant]
     Active Substance: AZATHIOPRINE
     Route: 065
  13. RANITIDINE. [Concomitant]
     Active Substance: RANITIDINE
     Route: 065
  14. POTASSIUM [Concomitant]
     Active Substance: POTASSIUM
     Route: 065
  15. MORPHINE [Concomitant]
     Active Substance: MORPHINE
     Dosage: SR AND IR15 MG IN AM AND 30 MG AT HOUR OF SLEEP, STATEX 5 MG AS NECESSARY
     Route: 048

REACTIONS (8)
  - Nausea [Not Recovered/Not Resolved]
  - Vomiting [Not Recovered/Not Resolved]
  - Pain [Not Recovered/Not Resolved]
  - Varices oesophageal [Unknown]
  - Spigelian hernia [Not Recovered/Not Resolved]
  - Dehydration [Unknown]
  - Portal hypertension [Not Recovered/Not Resolved]
  - Abdominal pain [Not Recovered/Not Resolved]

NARRATIVE: CASE EVENT DATE: 201403
